FAERS Safety Report 8005380-6 (Version None)
Quarter: 2011Q4

REPORT INFORMATION
  Report Type: 
  Country: None (occurrence: None)
  Receive Date: 20111223
  Receipt Date: 20111219
  Transmission Date: 20120403
  Serious: Yes (Hospitalization, Other)
  Sender: FDA-Public Use
  Company Number: US-SANOFI-AVENTIS-2011SA083719

PATIENT
  Sex: Female

DRUGS (3)
  1. PLAVIX [Suspect]
  2. LOVENOX [Concomitant]
  3. COUMADIN [Concomitant]

REACTIONS (2)
  - SUICIDAL IDEATION [None]
  - TACHYCARDIA [None]
